FAERS Safety Report 15887655 (Version 1)
Quarter: 2019Q1

REPORT INFORMATION
  Report Type: Spontaneous
  Country: PT (occurrence: PT)
  Receive Date: 20190130
  Receipt Date: 20190130
  Transmission Date: 20190417
  Serious: Yes (Hospitalization, Other)
  Sender: FDA-Public Use
  Company Number: PT-AXELLIA-002194

PATIENT
  Age: 84 Year
  Sex: Male

DRUGS (4)
  1. VANCOMYCIN [Suspect]
     Active Substance: VANCOMYCIN
     Indication: ENDOPHTHALMITIS
     Dosage: ALSO TAKEN IN FORM OF EYE DROPS
     Route: 050
  2. AMOXICILLIN/CLAVULANIC ACID [Suspect]
     Active Substance: AMOXICILLIN\CLAVULANIC ACID
     Indication: URINARY TRACT INFECTION
     Dosage: UNK
     Route: 065
  3. CEFTAZIDIME/CEFTAZIDIME PENTAHYDRATE [Suspect]
     Active Substance: CEFTAZIDIME
     Indication: ENDOPHTHALMITIS
     Dosage: ALSO TAKEN IN FORM OF INJECTION
     Route: 047
  4. CEFUROXIME. [Suspect]
     Active Substance: CEFUROXIME
     Indication: ENDOPHTHALMITIS

REACTIONS (2)
  - Amaurosis [Unknown]
  - Drug ineffective [Unknown]
